FAERS Safety Report 9198443 (Version 1)
Quarter: 2013Q1

REPORT INFORMATION
  Report Type: Spontaneous
  Country: US (occurrence: None)
  Receive Date: 20130327
  Receipt Date: 20130327
  Transmission Date: 20140127
  Serious: Yes (Other)
  Sender: FDA-Public Use
  Company Number: None

PATIENT
  Age: 57 Year
  Sex: Female
  Weight: 58.97 kg

DRUGS (6)
  1. CYMBALTA [Suspect]
     Indication: DEPRESSION
     Dosage: 1 TAB  ONCE A DAY PO
     Route: 048
     Dates: start: 20130118, end: 20130212
  2. TRAZODONE [Concomitant]
  3. SEROQUEL [Concomitant]
  4. SYNTHROID [Concomitant]
  5. METOPROLOL [Concomitant]
  6. NEURONTIN [Concomitant]

REACTIONS (1)
  - Suicidal ideation [None]
